FAERS Safety Report 4924699-6 (Version None)
Quarter: 2006Q1

REPORT INFORMATION
  Report Type: 
  Country: None (occurrence: None)
  Receive Date: 20060222
  Receipt Date: 20060207
  Transmission Date: 20060701
  Serious: Yes (Hospitalization)
  Sender: FDA-Public Use
  Company Number: 2006RL000035

PATIENT
  Age: 75 Year
  Sex: Male

DRUGS (6)
  1. FENOFIBRATE [Suspect]
     Indication: HYPERTRIGLYCERIDAEMIA
     Dosage: 200 MG; QD; PO
     Route: 048
     Dates: start: 20040101, end: 20040101
  2. ROSIGLITAZONE [Suspect]
     Indication: DIABETES MELLITUS INADEQUATE CONTROL
     Dosage: 2 MG; BID; PO
     Route: 048
     Dates: start: 20040101, end: 20040101
  3. PHENPROCOUMON [Concomitant]
  4. VALSARTAN [Concomitant]
  5. SYMPATHOMIMETICS [Concomitant]
  6. METFORMIN [Concomitant]

REACTIONS (8)
  - ALANINE AMINOTRANSFERASE INCREASED [None]
  - ASPARTATE AMINOTRANSFERASE INCREASED [None]
  - DIABETES MELLITUS INADEQUATE CONTROL [None]
  - DRUG INTERACTION [None]
  - LIVER FUNCTION TEST ABNORMAL [None]
  - METABOLIC DISORDER [None]
  - MYOPATHY [None]
  - RENAL IMPAIRMENT [None]
